FAERS Safety Report 23950439 (Version 1)
Quarter: 2024Q2

REPORT INFORMATION
  Report Type: Spontaneous
  Country: US (occurrence: US)
  Receive Date: 20240607
  Receipt Date: 20240607
  Transmission Date: 20240716
  Serious: Yes (Other)
  Sender: FDA-Public Use
  Company Number: US-MSNLABS-2024MSNLIT01241

PATIENT

DRUGS (3)
  1. BORTEZOMIB [Suspect]
     Active Substance: BORTEZOMIB
     Indication: Immune-complex membranoproliferative glomerulonephritis
     Dosage: 3 CYCLES
     Route: 065
  2. CYTOXAN [Suspect]
     Active Substance: CYCLOPHOSPHAMIDE
     Indication: Immune-complex membranoproliferative glomerulonephritis
     Dosage: 3 CYCLES
     Route: 065
  3. DARATUMUMAB [Suspect]
     Active Substance: DARATUMUMAB
     Indication: Immune-complex membranoproliferative glomerulonephritis
     Dosage: 3 CYCLES
     Route: 065

REACTIONS (1)
  - Therapy non-responder [Unknown]
